FAERS Safety Report 4305308-6 (Version None)
Quarter: 2004Q1

REPORT INFORMATION
  Report Type: 
  Country: None (occurrence: None)
  Receive Date: 20040226
  Receipt Date: 20030409
  Transmission Date: 20041129
  Serious: Yes (Other)
  Sender: FDA-Public Use
  Company Number: US-BRISTOL-MYERS SQUIBB COMPANY-12235487

PATIENT
  Age: 41 Year
  Sex: Female
  Weight: 67 kg

DRUGS (8)
  1. TAXOL [Suspect]
     Indication: BREAST CANCER
     Route: 042
     Dates: start: 20001001, end: 20010101
  2. DECADRON [Concomitant]
     Indication: PREMEDICATION
     Route: 042
  3. DECADRON [Concomitant]
     Route: 048
  4. CIMETIDINE HCL [Concomitant]
     Indication: PREMEDICATION
     Route: 042
  5. BENADRYL [Concomitant]
     Indication: PREMEDICATION
     Route: 042
  6. KYTRIL [Concomitant]
     Indication: PREMEDICATION
     Route: 042
  7. TAMOXIFEN [Concomitant]
     Dates: start: 20010301
  8. VITAMIN B6 [Concomitant]
     Dates: start: 20011201

REACTIONS (1)
  - DEAFNESS [None]
